FAERS Safety Report 10207647 (Version 1)
Quarter: 2014Q2

REPORT INFORMATION
  Report Type: Spontaneous
  Country: US (occurrence: US)
  Receive Date: 20140530
  Receipt Date: 20140530
  Transmission Date: 20141212
  Serious: Yes (Hospitalization)
  Sender: FDA-Public Use
  Company Number: US-GLAXOSMITHKLINE-A1053142A

PATIENT
  Age: 50 Year
  Sex: Female

DRUGS (3)
  1. ADVAIR HFA [Suspect]
     Indication: ASTHMA
     Route: 065
  2. FLOVENT [Suspect]
     Indication: ASTHMA
     Route: 065
  3. VENTOLIN [Suspect]
     Indication: ASTHMA
     Route: 065

REACTIONS (1)
  - Investigation [Recovered/Resolved]
